FAERS Safety Report 24112143 (Version 2)
Quarter: 2024Q3

REPORT INFORMATION
  Report Type: Spontaneous
  Country: US (occurrence: US)
  Receive Date: 20240719
  Receipt Date: 20240821
  Transmission Date: 20241016
  Serious: No
  Sender: PFIZER
  Company Number: US-PFIZER INC-202400213969

PATIENT
  Age: 20 Year
  Sex: Male

DRUGS (4)
  1. GENOTROPIN [Suspect]
     Active Substance: SOMATROPIN
     Indication: Growth hormone deficiency
     Dosage: 0.3 MG, DAILY
  2. LEVOTHYROXINE [Concomitant]
     Active Substance: LEVOTHYROXINE\LEVOTHYROXINE SODIUM
     Dosage: 88 UG, ALTERNATE DAY (EVERY OTHER DAY)
  3. LEVOTHYROXINE [Concomitant]
     Active Substance: LEVOTHYROXINE\LEVOTHYROXINE SODIUM
     Dosage: 75 UG, ALTERNATE DAY (EVERY OTHER DAY)
  4. TESTOSTERONE [Concomitant]
     Active Substance: TESTOSTERONE
     Indication: Hypergonadism
     Dosage: 0.4 ML (EVERY 2 WEEKS)

REACTIONS (3)
  - Drug dose omission by device [Unknown]
  - Poor quality device used [Unknown]
  - Device breakage [Unknown]
